FAERS Safety Report 9838254 (Version 1)
Quarter: 2013Q4

REPORT INFORMATION
  Report Type: Spontaneous
  Country: US (occurrence: None)
  Receive Date: 20131205
  Receipt Date: 20131205
  Transmission Date: 20140711
  Serious: No
  Sender: FDA-Public Use
  Company Number: 163-POMAL-13100658

PATIENT
  Age: 66 Year
  Sex: Female

DRUGS (1)
  1. POMALYST (POMALIDOMIDE) (3 MILLIGRAM, CAPSULES) [Suspect]
     Indication: PLASMA CELL MYELOMA
     Dosage: 3 MG, 21 IN 21 D, PO
     Route: 048
     Dates: start: 20130919

REACTIONS (3)
  - Lethargy [None]
  - Thinking abnormal [None]
  - Fatigue [None]
